FAERS Safety Report 4681972-7 (Version None)
Quarter: 2005Q2

REPORT INFORMATION
  Report Type: 
  Country: None (occurrence: None)
  Receive Date: 20050602
  Receipt Date: 20050520
  Transmission Date: 20051028
  Serious: Yes (Hospitalization)
  Sender: FDA-Public Use
  Company Number: SUS1-2005-00424

PATIENT
  Age: 7 Year
  Sex: Male
  Weight: 49.9 kg

DRUGS (1)
  1. ADDERALL XR 10 [Suspect]
     Indication: ATTENTION DEFICIT/HYPERACTIVITY DISORDER
     Dosage: 5 MG, 1X/DAY IN AM
     Dates: start: 20050506, end: 20050520

REACTIONS (2)
  - CARDIAC ARREST [None]
  - RESPIRATORY ARREST [None]
